FAERS Safety Report 11892002 (Version 1)
Quarter: 2016Q1

REPORT INFORMATION
  Report Type: Spontaneous
  Country: US (occurrence: US)
  Receive Date: 20160106
  Receipt Date: 20160106
  Transmission Date: 20160526
  Serious: Yes (Other)
  Sender: FDA-Public Use
  Company Number: US-PFIZER INC-2015478177

PATIENT
  Sex: Male

DRUGS (1)
  1. LINCOCIN [Suspect]
     Active Substance: LINCOMYCIN
     Dosage: UNK

REACTIONS (8)
  - Meningitis meningococcal [Unknown]
  - Scar [Unknown]
  - Malaise [Unknown]
  - Deafness [Unknown]
  - Schizophrenia [Unknown]
  - Asthma [Unknown]
  - Strabismus [Unknown]
  - Febrile convulsion [Unknown]
